FAERS Safety Report 4601009-5 (Version None)
Quarter: 2005Q1

REPORT INFORMATION
  Report Type: 
  Country: None (occurrence: None)
  Receive Date: 20050304
  Receipt Date: 20050304
  Transmission Date: 20050727
  Serious: No
  Sender: FDA-Public Use
  Company Number: None

PATIENT
  Age: 65 Year
  Sex: Female

DRUGS (1)
  1. GLIPIZIDE [Suspect]
     Indication: DIABETES MELLITUS
     Dosage: 10 MG PO DAILY
     Route: 048
     Dates: start: 20050217, end: 20050218

REACTIONS (2)
  - BALANCE DISORDER [None]
  - BLOOD GLUCOSE DECREASED [None]
